FAERS Safety Report 16891524 (Version 2)
Quarter: 2019Q4

REPORT INFORMATION
  Report Type: Report from Study
  Country: US (occurrence: US)
  Receive Date: 20191007
  Receipt Date: 20191011
  Transmission Date: 20200122
  Serious: Yes (Hospitalization, Other)
  Sender: FDA-Public Use
  Company Number: US-PUMA BIOTECHNOLOGY, LTD.-2019US005134

PATIENT

DRUGS (2)
  1. NERLYNX [Suspect]
     Active Substance: NERATINIB
     Dosage: 240 MG (6 TABLETS), DAILY
     Route: 048
     Dates: start: 201908
  2. NERLYNX [Suspect]
     Active Substance: NERATINIB
     Indication: BREAST CANCER FEMALE
     Dosage: 240 MG (6 TABLETS), DAILY
     Route: 048
     Dates: start: 20190222, end: 2019

REACTIONS (14)
  - Cholecystitis [Unknown]
  - Chest pain [Unknown]
  - Hepatic enzyme increased [Not Recovered/Not Resolved]
  - Sleep disorder [Unknown]
  - Vomiting [Not Recovered/Not Resolved]
  - Intervertebral disc protrusion [Unknown]
  - Dehydration [Unknown]
  - Anxiety [Unknown]
  - Feeding disorder [Unknown]
  - Flatulence [Not Recovered/Not Resolved]
  - Malaise [Unknown]
  - Nausea [Not Recovered/Not Resolved]
  - Diarrhoea [Not Recovered/Not Resolved]
  - Abdominal pain upper [Unknown]

NARRATIVE: CASE EVENT DATE: 2019
